FAERS Safety Report 17133555 (Version 7)
Quarter: 2020Q1

REPORT INFORMATION
  Report Type: Spontaneous
  Country: FR (occurrence: FR)
  Receive Date: 20191210
  Receipt Date: 20200310
  Transmission Date: 20200409
  Serious: Yes (Hospitalization, Other)
  Sender: FDA-Public Use
  Company Number: FR-AUROBINDO-AUR-APL-2019-103467

PATIENT
  Age: 51 Year
  Sex: Female
  Weight: 76 kg

DRUGS (19)
  1. UPTRAVI [Suspect]
     Active Substance: SELEXIPAG
     Dosage: 1400 MICROGRAM, TWO TIMES A DAY (2800 MICROGRAM ONCE A DAY)
     Route: 048
     Dates: start: 20200128, end: 20200213
  2. OXYGEN. [Concomitant]
     Active Substance: OXYGEN
     Dosage: 12 LITER
     Route: 055
  3. UPTRAVI [Suspect]
     Active Substance: SELEXIPAG
     Dosage: 1400 MICROGRAM, TWO TIMES A DAY (2800 MICROGRAM ONCE A DAY)
     Route: 048
  4. TADALAFIL. [Suspect]
     Active Substance: TADALAFIL
     Dosage: UNK
     Route: 048
  5. TRACLEER [Suspect]
     Active Substance: BOSENTAN
     Indication: PULMONARY ARTERIAL HYPERTENSION
     Dosage: UNK
     Route: 048
     Dates: start: 20191115
  6. UPTRAVI [Suspect]
     Active Substance: SELEXIPAG
     Dosage: 1000 MICROGRAM, TWO TIMES A DAY (2000 MCG ONCE A DAY)
     Route: 048
     Dates: start: 20191119
  7. UPTRAVI [Suspect]
     Active Substance: SELEXIPAG
     Dosage: 1200 MICROGRAM, TWO TIMES A DAY (2400 MICROGRAM ONCE A DAY)
     Route: 048
     Dates: start: 20191126
  8. UPTRAVI [Suspect]
     Active Substance: SELEXIPAG
     Dosage: 400 MICROGRAM, TWO TIMES A DAY (800 MCG ONCE A DAY)
     Route: 048
     Dates: start: 20190928
  9. UPTRAVI [Suspect]
     Active Substance: SELEXIPAG
     Dosage: 600 MICROGRAM, TWO TIMES A DAY (1200 MCG ONCE A DAY)
     Route: 048
     Dates: start: 20191005
  10. UPTRAVI [Suspect]
     Active Substance: SELEXIPAG
     Dosage: 800 MICROGRAM, TWO TIMES A DAY (1600 MCG ONCE A DAY)
     Route: 048
     Dates: start: 20191012
  11. OXYGEN. [Concomitant]
     Active Substance: OXYGEN
     Indication: PRODUCT USED FOR UNKNOWN INDICATION
     Dosage: 15 LITER
     Route: 055
  12. TRACLEER [Suspect]
     Active Substance: BOSENTAN
     Dosage: UNK
     Route: 048
  13. UPTRAVI [Suspect]
     Active Substance: SELEXIPAG
     Indication: PULMONARY ARTERIAL HYPERTENSION
     Dosage: 200 MICROGRAM, TWO TIMES A DAY (400 MCG ONCE A DAY)
     Route: 048
     Dates: start: 20190921
  14. UPTRAVI [Suspect]
     Active Substance: SELEXIPAG
     Dosage: 800 MICROGRAM, TWO TIMES A DAY (1600 MCG ONCE A DAY)
     Route: 048
     Dates: start: 20191021
  15. TADALAFIL. [Suspect]
     Active Substance: TADALAFIL
     Indication: PULMONARY ARTERIAL HYPERTENSION
     Dosage: UNK
     Route: 048
     Dates: start: 20191115
  16. UPTRAVI [Suspect]
     Active Substance: SELEXIPAG
     Dosage: 1400 MICROGRAM, TWO TIMES A DAY (2800 MICROGRAM ONCE A DAY)
     Route: 048
     Dates: start: 20191210
  17. OXYGEN. [Concomitant]
     Active Substance: OXYGEN
     Dosage: 2 LITER
     Route: 055
  18. UPTRAVI [Suspect]
     Active Substance: SELEXIPAG
     Dosage: 1000 MICROGRAM, TWO TIMES A DAY
     Route: 048
     Dates: start: 20191019
  19. UPTRAVI [Suspect]
     Active Substance: SELEXIPAG
     Dosage: 1600 MICROGRAM, TWO TIMES A DAY (3200 MICROGRAM ONCE A DAY)
     Route: 048
     Dates: start: 20191217

REACTIONS (17)
  - Diarrhoea [Not Recovered/Not Resolved]
  - Eye pain [Recovered/Resolved]
  - Malaise [Not Recovered/Not Resolved]
  - Fatigue [Recovered/Resolved]
  - Myalgia [Not Recovered/Not Resolved]
  - Nausea [Recovered/Resolved]
  - Dyspnoea [Recovering/Resolving]
  - Sleep disorder [Recovered/Resolved]
  - Productive cough [Unknown]
  - Flushing [Recovered/Resolved]
  - Abdominal pain upper [Not Recovered/Not Resolved]
  - Cough [Recovered/Resolved]
  - Headache [Not Recovered/Not Resolved]
  - Blood potassium increased [Not Recovered/Not Resolved]
  - Throat irritation [Unknown]
  - Pain in jaw [Not Recovered/Not Resolved]
  - Product prescribing error [Recovered/Resolved]

NARRATIVE: CASE EVENT DATE: 20190921
